FAERS Safety Report 20822623 (Version 2)
Quarter: 2022Q2

REPORT INFORMATION
  Report Type: Spontaneous
  Country: US (occurrence: US)
  Receive Date: 20220512
  Receipt Date: 20220627
  Transmission Date: 20220721
  Serious: No
  Sender: FDA-Public Use
  Company Number: US-BRISTOL-MYERS SQUIBB COMPANY-2022-023761

PATIENT
  Age: 74 Year
  Sex: Female

DRUGS (2)
  1. REVLIMID [Suspect]
     Active Substance: LENALIDOMIDE
     Indication: Plasma cell myeloma
     Dosage: DOSE AND FREQUENCY: TAKE 1 CAPSULE BY MOUTH DAILY ON DAYS 1-21 OF 28 DAY CYCLE
     Route: 048
  2. REVLIMID [Suspect]
     Active Substance: LENALIDOMIDE
     Dosage: FREQUENCY: DAYS 1-21 OF 28 DAY CYCLE.
     Route: 048

REACTIONS (3)
  - Hypoaesthesia [Unknown]
  - Nasopharyngitis [Unknown]
  - Incorrect dose administered [Unknown]
